FAERS Safety Report 11328952 (Version 3)
Quarter: 2015Q4

REPORT INFORMATION
  Report Type: Report from Study
  Country: FR (occurrence: FR)
  Receive Date: 20150802
  Receipt Date: 20151105
  Transmission Date: 20160304
  Serious: Yes (Hospitalization)
  Sender: FDA-Public Use
  Company Number: FR-AMGEN-FRACT2015076209

PATIENT
  Age: 69 Year
  Sex: Male
  Weight: 49.5 kg

DRUGS (11)
  1. CISPLATIN. [Suspect]
     Active Substance: CISPLATIN
     Indication: PRODUCT USED FOR UNKNOWN INDICATION
     Dosage: 97 MG, UNK
     Route: 042
     Dates: start: 20150514
  2. NOVONORM [Concomitant]
     Active Substance: REPAGLINIDE
     Indication: TYPE 2 DIABETES MELLITUS
     Dosage: UNK
     Route: 048
  3. ESCITALOPRAM [Concomitant]
     Active Substance: ESCITALOPRAM OXALATE
     Indication: DEPRESSION
     Dosage: UNK
     Dates: start: 20150726
  4. CRESTOR [Concomitant]
     Active Substance: ROSUVASTATIN CALCIUM
     Indication: DYSLIPIDAEMIA
     Dosage: UNK
     Route: 048
     Dates: end: 20150722
  5. PANITUMUMAB [Suspect]
     Active Substance: PANITUMUMAB
     Indication: PRODUCT USED FOR UNKNOWN INDICATION
     Dosage: 320 MG, UNK
     Route: 042
     Dates: start: 20150514
  6. METHOTREXATE [Suspect]
     Active Substance: METHOTREXATE
     Indication: PRODUCT USED FOR UNKNOWN INDICATION
     Dosage: 42 MG, UNK
     Route: 042
     Dates: start: 20150513
  7. NIVESTIM [Concomitant]
     Active Substance: FILGRASTIM
     Dosage: 30000 IU, QD
     Dates: start: 20150729
  8. DOXORUBICINE [Suspect]
     Active Substance: DOXORUBICIN
     Indication: PRODUCT USED FOR UNKNOWN INDICATION
     Dosage: 42 MG, UNK
     Route: 042
     Dates: start: 20150514
  9. VINBLASTIN [Suspect]
     Active Substance: VINBLASTINE
     Indication: PRODUCT USED FOR UNKNOWN INDICATION
     Dosage: 4.2 MG, UNK
     Route: 042
     Dates: start: 20150514
  10. FLECAINIDE [Concomitant]
     Active Substance: FLECAINIDE
     Indication: ARRHYTHMIA
     Dosage: 100 MG, QD
     Route: 048
  11. NOCTAMIDE [Concomitant]
     Active Substance: LORMETAZEPAM
     Indication: INSOMNIA
     Dosage: 1 MG, QD
     Route: 048

REACTIONS (5)
  - Mucosal inflammation [Recovered/Resolved with Sequelae]
  - Nutritional condition abnormal [Recovered/Resolved]
  - Asthenia [Recovered/Resolved with Sequelae]
  - General physical health deterioration [Recovered/Resolved]
  - Hypomagnesaemia [Recovered/Resolved with Sequelae]

NARRATIVE: CASE EVENT DATE: 20150722
